FAERS Safety Report 14270847 (Version 1)
Quarter: 2017Q4

REPORT INFORMATION
  Report Type: Spontaneous
  Country: GB (occurrence: GB)
  Receive Date: 20171211
  Receipt Date: 20171211
  Transmission Date: 20180321
  Serious: Yes (Disabling, Other)
  Sender: FDA-Public Use
  Company Number: GB-OTSUKA-2016_026829

PATIENT
  Age: 36 Year
  Sex: Female
  Weight: 80 kg

DRUGS (2)
  1. ARIPIPRAZOLE. [Suspect]
     Active Substance: ARIPIPRAZOLE
     Indication: PSYCHOTIC DISORDER
     Dosage: 20 MG, UNK
     Route: 048
     Dates: start: 201405, end: 201610
  2. LEVOTHYROXINE. [Concomitant]
     Active Substance: LEVOTHYROXINE
     Indication: HYPOTHYROIDISM
     Dosage: 75 ?G, UNK
     Route: 048
     Dates: start: 2010

REACTIONS (3)
  - Obesity [Not Recovered/Not Resolved]
  - Product use in unapproved indication [Unknown]
  - Abnormal weight gain [Not Recovered/Not Resolved]

NARRATIVE: CASE EVENT DATE: 201405
